FAERS Safety Report 5292922-7 (Version None)
Quarter: 2007Q2

REPORT INFORMATION
  Report Type: 
  Country: None (occurrence: None)
  Receive Date: 20070411
  Receipt Date: 20070402
  Transmission Date: 20071010
  Serious: Yes (Other)
  Sender: FDA-Public Use
  Company Number: HQWYE340102APR07

PATIENT
  Age: 60 Year
  Sex: Male

DRUGS (4)
  1. CORDARONE [Suspect]
     Dosage: UNSPECIFIED
  2. PERINDOPRIL ERBUMINE [Concomitant]
  3. PRAVASTATINE ^SQUIBB^ [Concomitant]
  4. SINTROM [Concomitant]

REACTIONS (2)
  - INTRACRANIAL PRESSURE INCREASED [None]
  - PAPILLOEDEMA [None]
